FAERS Safety Report 25927416 (Version 1)
Quarter: 2025Q4

REPORT INFORMATION
  Report Type: Spontaneous
  Country: CN (occurrence: CN)
  Receive Date: 20251015
  Receipt Date: 20251015
  Transmission Date: 20260117
  Serious: Yes (Life-Threatening, Hospitalization)
  Sender: ABBVIE
  Company Number: CN-ABBVIE-6504291

PATIENT
  Age: 75 Year
  Sex: Male
  Weight: 61 kg

DRUGS (3)
  1. VENETOCLAX [Suspect]
     Active Substance: VENETOCLAX
     Indication: Myelodysplastic syndrome with excess blasts
     Route: 048
     Dates: start: 20250908, end: 20251006
  2. AZACITIDINE [Suspect]
     Active Substance: AZACITIDINE
     Indication: Myelodysplastic syndrome with excess blasts
     Route: 058
     Dates: start: 20250908, end: 20250914
  3. STERILE WATER [Concomitant]
     Active Substance: WATER
     Indication: Vehicle solution use
     Route: 058
     Dates: start: 20250908, end: 20250914

REACTIONS (1)
  - Myelosuppression [Recovering/Resolving]

NARRATIVE: CASE EVENT DATE: 20251006
